FAERS Safety Report 5859313-9 (Version None)
Quarter: 2008Q3

REPORT INFORMATION
  Report Type: 
  Country: None (occurrence: None)
  Receive Date: 20080826
  Receipt Date: 20080826
  Transmission Date: 20090109
  Serious: Yes (Life-Threatening)
  Sender: FDA-Public Use
  Company Number: None

PATIENT
  Age: 59 Year
  Sex: Male
  Weight: 109 kg

DRUGS (2)
  1. ROSUVASTATIN CALCIUM [Suspect]
     Indication: HYPERLIPIDAEMIA
     Dosage: 20 MG EVERYDAY PO
     Route: 048
     Dates: start: 20071210, end: 20080417
  2. NIACIN [Suspect]
     Indication: HYPERLIPIDAEMIA
     Dosage: 1500 MG EVERY DAY PO
     Route: 048
     Dates: start: 20070110, end: 20080417

REACTIONS (8)
  - BLOOD PRESSURE DECREASED [None]
  - CONFUSIONAL STATE [None]
  - HAEMODIALYSIS [None]
  - NAUSEA [None]
  - RENAL FAILURE ACUTE [None]
  - RHABDOMYOLYSIS [None]
  - SINUS TACHYCARDIA [None]
  - VOMITING [None]
